FAERS Safety Report 25270187 (Version 1)
Quarter: 2025Q2

REPORT INFORMATION
  Report Type: Report from Study
  Country: FR (occurrence: FR)
  Receive Date: 20250505
  Receipt Date: 20250505
  Transmission Date: 20250717
  Serious: Yes (Death, Hospitalization, Other)
  Sender: MYLAN
  Company Number: FR-BRISTOL-MYERS SQUIBB COMPANY-2025-044452

PATIENT
  Age: 84 Year
  Sex: Male

DRUGS (3)
  1. GEMCITABINE [Suspect]
     Active Substance: GEMCITABINE
     Indication: Product used for unknown indication
  2. CARBOPLATIN [Suspect]
     Active Substance: CARBOPLATIN
     Indication: Product used for unknown indication
  3. NIVOLUMAB [Suspect]
     Active Substance: NIVOLUMAB
     Indication: Transitional cell carcinoma
     Dates: start: 20231205, end: 20240116

REACTIONS (4)
  - Respiratory failure [Fatal]
  - Malignant neoplasm progression [Fatal]
  - Pneumonia [Unknown]
  - General physical health deterioration [Unknown]

NARRATIVE: CASE EVENT DATE: 20240831
